FAERS Safety Report 25105668 (Version 1)
Quarter: 2025Q1

REPORT INFORMATION
  Report Type: Spontaneous
  Country: US (occurrence: US)
  Receive Date: 20250321
  Receipt Date: 20250321
  Transmission Date: 20250409
  Serious: No
  Sender: ESPERION THERAPEUTICS
  Company Number: US-ESPERIONTHERAPEUTICS-2024USA00964

PATIENT
  Age: 54 Year
  Sex: Female

DRUGS (7)
  1. NEXLETOL [Suspect]
     Active Substance: BEMPEDOIC ACID
     Indication: Blood cholesterol increased
     Route: 048
     Dates: start: 20240607, end: 202406
  2. NEXLETOL [Suspect]
     Active Substance: BEMPEDOIC ACID
     Indication: Lipoprotein (a) increased
  3. ENVARSUS XR [Concomitant]
     Active Substance: TACROLIMUS
     Dosage: UNK, QD
     Route: 065
  4. EVEROLIMUS [Concomitant]
     Active Substance: EVEROLIMUS
     Dosage: UNK, QD
     Route: 065
  5. PREDNISONE [Concomitant]
     Active Substance: PREDNISONE
     Dosage: LOW DOSE QD
     Route: 065
  6. ASPIRIN [Concomitant]
     Active Substance: ASPIRIN
     Route: 065
  7. CAPTOPRIL [Concomitant]
     Active Substance: CAPTOPRIL
     Dosage: UNK, QD
     Route: 065

REACTIONS (4)
  - Renal pain [Recovered/Resolved]
  - Fatigue [Recovered/Resolved]
  - Off label use [Recovered/Resolved]
  - Muscle spasms [Recovered/Resolved]

NARRATIVE: CASE EVENT DATE: 20240607
